FAERS Safety Report 19298558 (Version 1)
Quarter: 2021Q2

REPORT INFORMATION
  Report Type: Spontaneous
  Country: JP (occurrence: JP)
  Receive Date: 20210525
  Receipt Date: 20210525
  Transmission Date: 20210717
  Serious: Yes (Death, Hospitalization, Other)
  Sender: FDA-Public Use
  Company Number: JP-AMGEN-JPNSP2021063969

PATIENT
  Age: 70 Year
  Sex: Male

DRUGS (41)
  1. DUVROQ [Suspect]
     Active Substance: DAPRODUSTAT
     Indication: NEPHROGENIC ANAEMIA
     Dosage: 4 MG, QD, AFTER DINNER
     Route: 048
     Dates: start: 20210112, end: 20210115
  2. FUROSEMIDE. [Concomitant]
     Active Substance: FUROSEMIDE
     Dosage: 40 MG, QD, AFTER BREAKFAST
     Route: 048
     Dates: start: 20210108, end: 20210108
  3. TRESIBA [Concomitant]
     Active Substance: INSULIN DEGLUDEC
     Dosage: UNK
     Route: 065
  4. DARBEPOETIN ALFA [Suspect]
     Active Substance: DARBEPOETIN ALFA
     Dosage: 60 MICROGRAM, QWK
     Route: 042
     Dates: start: 202004
  5. ALFACALCIDOL [Concomitant]
     Active Substance: ALFACALCIDOL
     Dosage: 0.25 UG, QD, AFTER BREAKFAST
     Route: 048
     Dates: end: 20210116
  6. ATELEC [Concomitant]
     Active Substance: CILNIDIPINE
     Dosage: 10 MG, QD, AFTER BREAKFAST
     Route: 048
     Dates: end: 20210116
  7. LANSOPRAZOLE. [Concomitant]
     Active Substance: LANSOPRAZOLE
     Dosage: 15 MG, QD, AFTER BREAKFAST
     Route: 048
     Dates: end: 20210116
  8. VANCOMYCIN HYDROCHLORIDE. [Concomitant]
     Active Substance: VANCOMYCIN HYDROCHLORIDE
     Dosage: 0.5 G, QD
     Route: 041
     Dates: start: 20201231, end: 20201231
  9. GLUCOSE [Concomitant]
     Active Substance: DEXTROSE
     Dosage: 100 ML, QD
     Route: 041
     Dates: start: 20210105, end: 20210105
  10. GLUCOSE [Concomitant]
     Active Substance: DEXTROSE
     Dosage: 50 ML, QD
     Route: 041
     Dates: start: 20210105, end: 20210115
  11. MEROPENEM. [Concomitant]
     Active Substance: MEROPENEM
     Dosage: 0.5 G, QD
     Route: 041
     Dates: end: 20210103
  12. AZUNOL [GUAIAZULENE] [Concomitant]
     Active Substance: GUAIAZULENE
     Dosage: UNK
     Route: 061
  13. BISOPROLOL FUMARATE. [Concomitant]
     Active Substance: BISOPROLOL FUMARATE
     Dosage: 0.625 MG, QD, AFTER BREAKFAST
     Route: 048
     Dates: end: 20210116
  14. HEPARINOID [Concomitant]
     Active Substance: CHONDROITIN SULFATE (BOVINE)
     Dosage: UNK
     Route: 061
  15. CILOSTAZOL. [Concomitant]
     Active Substance: CILOSTAZOL
     Dosage: 50 MG, BID, AFTER BREAKFAST AND DINNER
     Route: 048
     Dates: end: 20210116
  16. FUROSEMIDE. [Concomitant]
     Active Substance: FUROSEMIDE
     Dosage: 40 MG, QD, AFTER BREAKFAST
     Route: 048
     Dates: start: 20210115, end: 20210115
  17. FUNGUARD [Concomitant]
     Active Substance: MICAFUNGIN SODIUM
     Dosage: 150 MG, QD
     Route: 041
     Dates: start: 20210105, end: 20210113
  18. SEISHOKU [Concomitant]
     Active Substance: SODIUM CHLORIDE
     Dosage: 100 ML, QD
     Route: 041
     Dates: end: 20210103
  19. DARBEPOETIN ALFA [Suspect]
     Active Substance: DARBEPOETIN ALFA
     Indication: NEPHROGENIC ANAEMIA
     Dosage: 120 UG
     Route: 042
     Dates: end: 20210103
  20. DARBEPOETIN ALFA [Suspect]
     Active Substance: DARBEPOETIN ALFA
     Dosage: 180 UG
     Route: 042
     Dates: start: 20210109, end: 20210109
  21. MIYA?BM [Concomitant]
     Active Substance: CLOSTRIDIUM BUTYRICUM SPORES STRAIN M-55
     Dosage: 2 DF, TID, AFTER BREAKFAST, LUNCH AND DINNER
     Route: 048
     Dates: end: 20210112
  22. FUNGUARD [Concomitant]
     Active Substance: MICAFUNGIN SODIUM
     Dosage: 150 MG, QD
     Route: 041
     Dates: end: 20210103
  23. GLUCOSE [Concomitant]
     Active Substance: DEXTROSE
     Dosage: 100 ML, QD
     Route: 041
     Dates: start: 20210103, end: 20210103
  24. GLUCOSE [Concomitant]
     Active Substance: DEXTROSE
     Dosage: 50 ML, QD
     Route: 041
     Dates: end: 20210103
  25. MEROPENEM. [Concomitant]
     Active Substance: MEROPENEM
     Dosage: 0.5 G, QD
     Route: 041
     Dates: start: 20210105, end: 20210115
  26. HUMALOG [Concomitant]
     Active Substance: INSULIN LISPRO
     Dosage: UNK
     Route: 065
  27. SEISHOKU [Concomitant]
     Active Substance: SODIUM CHLORIDE
     Dosage: 100 ML, QD
     Route: 041
     Dates: start: 20210105, end: 20210113
  28. GLUCOSE [Concomitant]
     Active Substance: DEXTROSE
     Dosage: 100 ML, QD
     Route: 041
     Dates: start: 20201229, end: 20201229
  29. WARFARIN [Concomitant]
     Active Substance: WARFARIN
     Dosage: 0.5 MG, QD, AFTER DINNER
     Route: 048
     Dates: start: 20210112, end: 20210115
  30. LIDOCAINE. [Concomitant]
     Active Substance: LIDOCAINE
     Dosage: 36 MG
  31. EQUA [Concomitant]
     Active Substance: VILDAGLIPTIN
     Dosage: 50 MG, QD, AFTER BREAKFAST
     Route: 048
     Dates: end: 20210116
  32. ASPARA POTASSIUM [Concomitant]
     Active Substance: POTASSIUM ASPARTATE
     Dosage: 600 MG, TID, AFTER BREAKFAST, LUNCH AND DINNER
     Route: 048
     Dates: end: 20210116
  33. BIOFERMIN R [Concomitant]
     Active Substance: DIETARY SUPPLEMENT\PROBIOTICS
     Dosage: 2 DF, TID,  AFTER BREAKFAST, LUNCH AND DINNER
     Route: 048
     Dates: start: 20210112, end: 20210115
  34. VANCOMYCIN HYDROCHLORIDE. [Concomitant]
     Active Substance: VANCOMYCIN HYDROCHLORIDE
     Dosage: 0.5 G, QD
     Route: 041
     Dates: start: 20210103, end: 20210103
  35. VANCOMYCIN HYDROCHLORIDE. [Concomitant]
     Active Substance: VANCOMYCIN HYDROCHLORIDE
     Dosage: 0.5 G, QD
     Route: 041
     Dates: start: 20210105, end: 20210105
  36. WARFARIN [Concomitant]
     Active Substance: WARFARIN
     Dosage: 2 MG, QD, AFTER DINNER
     Route: 048
     Dates: end: 20210111
  37. FOLIAMIN [FOLIC ACID] [Concomitant]
     Dosage: 5 MG, TID, AFTER BREAKFAST, LUNCH AND DINNER
     Route: 048
     Dates: start: 20210105, end: 20210116
  38. FUROSEMIDE. [Concomitant]
     Active Substance: FUROSEMIDE
     Dosage: 40 MG, QD, AFTER BREAKFAST
     Route: 048
     Dates: start: 20210110, end: 20210111
  39. PRECIPITATED CALCIUM CARBONATE [Concomitant]
     Active Substance: CALCIUM CARBONATE
     Dosage: 500 MG, TID, IMMEDIATELY AFTER BREAKFAST, LUNCH AND DINNER
     Route: 048
     Dates: end: 20210116
  40. VANCOMYCIN HYDROCHLORIDE. [Concomitant]
     Active Substance: VANCOMYCIN HYDROCHLORIDE
     Dosage: 0.5 G, QD
     Route: 041
     Dates: start: 20201229, end: 20201229
  41. GLUCOSE [Concomitant]
     Active Substance: DEXTROSE
     Dosage: 100 ML, QD
     Route: 041
     Dates: start: 20201231, end: 20201231

REACTIONS (4)
  - Dyspnoea [Recovering/Resolving]
  - Chest pain [Recovering/Resolving]
  - Acute myocardial infarction [Fatal]
  - Pneumonia [Not Recovered/Not Resolved]

NARRATIVE: CASE EVENT DATE: 20201210
